FAERS Safety Report 17316057 (Version 3)
Quarter: 2020Q1

REPORT INFORMATION
  Report Type: Spontaneous
  Country: CN (occurrence: CN)
  Receive Date: 20200124
  Receipt Date: 20200325
  Transmission Date: 20200409
  Serious: Yes (Hospitalization)
  Sender: FDA-Public Use
  Company Number: CN-CELGENEUS-CHN-20200106855

PATIENT
  Age: 61 Year
  Sex: Male
  Weight: 54 kg

DRUGS (18)
  1. AMBROXOL SODIUM CHLORIDE [Concomitant]
     Indication: COUGH
     Dosage: 30 (UNKNOWN UNIT)
     Route: 041
     Dates: start: 20191228, end: 20191228
  2. CARBOPLATIN. [Suspect]
     Active Substance: CARBOPLATIN
     Indication: NON-SMALL CELL LUNG CANCER
     Dosage: 493.9 MILLIGRAM
     Route: 041
     Dates: start: 20191221
  3. RECOMBINANT HUMAN GRANOCYTE COLONY-STIMULATING FACTOR [Concomitant]
     Indication: LEUKOPENIA
     Dosage: .3 MILLIGRAM
     Route: 058
     Dates: start: 20191228, end: 20191228
  4. RECOMBINANT HUMAN GRANOCYTE COLONY-STIMULATING FACTOR [Concomitant]
     Indication: NEUTROPENIA
     Dosage: .2 MILLIGRAM
     Route: 058
     Dates: start: 20200104, end: 20200104
  5. GLUTATHIONE [Concomitant]
     Active Substance: GLUTATHIONE
     Indication: PROPHYLAXIS
     Dosage: 1.8 (UNKNOWN UNIT)
     Route: 041
     Dates: start: 20191228, end: 20191228
  6. ABRAXANE [Suspect]
     Active Substance: PACLITAXEL
     Indication: NON-SMALL CELL LUNG CANCER
     Dosage: 152.5 MG
     Route: 041
     Dates: start: 20191228
  7. SERPLULIMAB. [Concomitant]
     Active Substance: SERPLULIMAB
     Indication: NON-SMALL CELL LUNG CANCER
     Dosage: 235.8 MILLIGRAM
     Route: 041
     Dates: start: 20191221
  8. CARBOPLATIN. [Suspect]
     Active Substance: CARBOPLATIN
     Dosage: 557.3 MILLIGRAM
     Route: 041
     Dates: start: 20200114
  9. ABRAXANE [Suspect]
     Active Substance: PACLITAXEL
     Dosage: 152.5 MG
     Route: 041
     Dates: start: 20191221
  10. RECOMBINANT HUMAN GRANOCYTE COLONY-STIMULATING FACTOR [Concomitant]
     Dosage: 15000 IU (INTERNATIONAL UNIT)
     Route: 058
  11. PALONOSETRON. [Concomitant]
     Active Substance: PALONOSETRON HYDROCHLORIDE
     Dosage: 5 (UNKNOWN UNIT)
     Route: 040
     Dates: start: 20200104, end: 20200104
  12. ABRAXANE [Suspect]
     Active Substance: PACLITAXEL
     Dosage: 148.1 MILLIGRAM
     Route: 041
     Dates: start: 20200114
  13. RECOMBINANT HUMAN GRANOCYTE COLONY-STIMULATING FACTOR [Concomitant]
     Indication: THROMBOCYTOPENIA
     Dosage: .1 MILLIGRAM
     Route: 058
     Dates: start: 20200112
  14. RECOMBINANT HUMAN THROMBOGENIN [Concomitant]
     Indication: THROMBOCYTOPENIA
     Dosage: 15000 IU (INTERNATIONAL UNIT)
     Route: 058
  15. ABRAXANE [Suspect]
     Active Substance: PACLITAXEL
     Dosage: 152.5 MG
     Route: 041
     Dates: start: 20200104
  16. SERPLULIMAB. [Concomitant]
     Active Substance: SERPLULIMAB
     Dosage: 238.5 MILLIGRAM
     Route: 041
     Dates: start: 20200114
  17. GLUTATHIONE [Concomitant]
     Active Substance: GLUTATHIONE
     Dosage: 1.8 (UNKNOWN UNIT)
     Route: 041
     Dates: start: 20200104, end: 20200104
  18. PALONOSETRON. [Concomitant]
     Active Substance: PALONOSETRON HYDROCHLORIDE
     Indication: ANTIEMETIC SUPPORTIVE CARE
     Dosage: 5 (UNKNOWN UNIT)
     Route: 040
     Dates: start: 20191228, end: 20191228

REACTIONS (1)
  - Bone marrow failure [Recovered/Resolved]

NARRATIVE: CASE EVENT DATE: 20200108
